FAERS Safety Report 18695094 (Version 2)
Quarter: 2021Q1

REPORT INFORMATION
  Report Type: Spontaneous
  Country: NL (occurrence: NL)
  Receive Date: 20210104
  Receipt Date: 20210122
  Transmission Date: 20210419
  Serious: Yes (Other)
  Sender: FDA-Public Use
  Company Number: NL-TEVA-2020-NL-1864343

PATIENT
  Age: 65 Year
  Sex: Male
  Weight: 83 kg

DRUGS (2)
  1. DUTASTERIDE/TAMSULOSINE CAPSULE 0,5/0,4MG / BRAND NAME NOT SPECIFIED [Suspect]
     Active Substance: DUTASTERIDE\TAMSULOSIN
     Indication: BENIGN PROSTATIC HYPERPLASIA
  2. DUTASTERIDE/TAMSULOSINE CAPSULE 0,5/0,4MG / BRAND NAME NOT SPECIFIED [Suspect]
     Active Substance: DUTASTERIDE\TAMSULOSIN
     Indication: DYSURIA
     Dosage: 1 DOSAGE FORMS DAILY; THERAPY END DATE : ASKED BUT UNKNOWN
     Dates: start: 20200904

REACTIONS (5)
  - Macular hole [Recovering/Resolving]
  - Visual acuity reduced [Recovering/Resolving]
  - Lacrimation increased [Not Recovered/Not Resolved]
  - Photophobia [Not Recovered/Not Resolved]
  - Eye pain [Not Recovered/Not Resolved]

NARRATIVE: CASE EVENT DATE: 2020
